FAERS Safety Report 9907770 (Version 1)
Quarter: 2014Q1

REPORT INFORMATION
  Report Type: Spontaneous
  Country: US (occurrence: US)
  Receive Date: 20140219
  Receipt Date: 20140219
  Transmission Date: 20141002
  Serious: No
  Sender: FDA-Public Use
  Company Number: US-009507513-1402USA007594

PATIENT
  Sex: Female

DRUGS (1)
  1. IMPLANON [Suspect]

REACTIONS (3)
  - Dizziness [Unknown]
  - Implant site pain [Unknown]
  - Abdominal pain upper [Unknown]
